FAERS Safety Report 25726878 (Version 4)
Quarter: 2025Q4

REPORT INFORMATION
  Report Type: Report from Study
  Country: BR (occurrence: BR)
  Receive Date: 20250826
  Receipt Date: 20251002
  Transmission Date: 20260117
  Serious: Yes (Other)
  Sender: NOVO NORDISK
  Company Number: BR-NOVOPROD-1504787

PATIENT
  Sex: Female
  Weight: 59 kg

DRUGS (3)
  1. LEXAPRO [Concomitant]
     Active Substance: ESCITALOPRAM OXALATE
     Indication: Depression
     Dosage: 10 MG, QD
     Dates: start: 2015
  2. WEGOVY [Suspect]
     Active Substance: SEMAGLUTIDE
     Indication: Diabetes mellitus
     Dosage: 14 CLICKS, 2 TIMES WEEKLY
     Dates: start: 202502, end: 20250726
  3. WEGOVY [Suspect]
     Active Substance: SEMAGLUTIDE
     Indication: Weight control

REACTIONS (6)
  - Diabetes mellitus [Not Recovered/Not Resolved]
  - Device delivery system issue [Unknown]
  - Product leakage [Unknown]
  - Wrong technique in product usage process [Recovered/Resolved]
  - Product storage error [Recovered/Resolved]
  - Liquid product physical issue [Unknown]

NARRATIVE: CASE EVENT DATE: 20250101
